FAERS Safety Report 13662081 (Version 2)
Quarter: 2017Q4

REPORT INFORMATION
  Report Type: Spontaneous
  Country: US (occurrence: US)
  Receive Date: 20170616
  Receipt Date: 20171128
  Transmission Date: 20180320
  Serious: Yes (Hospitalization, Other)
  Sender: FDA-Public Use
  Company Number: US-BAUSCH-BL-2017-019008

PATIENT
  Sex: Male

DRUGS (1)
  1. XIFAXAN [Suspect]
     Active Substance: RIFAXIMIN
     Indication: ENCEPHALOPATHY
     Route: 048
     Dates: start: 2012

REACTIONS (4)
  - Off label use [Not Recovered/Not Resolved]
  - Renal failure [Not Recovered/Not Resolved]
  - Hospitalisation [Not Recovered/Not Resolved]
  - Cardiac failure congestive [Unknown]

NARRATIVE: CASE EVENT DATE: 2012
